FAERS Safety Report 11572669 (Version 1)
Quarter: 2015Q3

REPORT INFORMATION
  Report Type: Spontaneous
  Country: US (occurrence: US)
  Receive Date: 20150916
  Receipt Date: 20150916
  Transmission Date: 20151125
  Serious: No
  Sender: FDA-Public Use
  Company Number: US-ELI_LILLY_AND_COMPANY-US200910004498

PATIENT
  Sex: Female

DRUGS (3)
  1. IMMUNOSUPPRESSANTS [Concomitant]
     Active Substance: UNSPECIFIED INGREDIENT
     Indication: LIVER TRANSPLANT
  2. FORTEO [Suspect]
     Active Substance: TERIPARATIDE
     Indication: OSTEOPOROSIS
     Dates: start: 20090913
  3. ASPIRIN. [Concomitant]
     Active Substance: ASPIRIN
     Dosage: 81 MG, DAILY (1/D)

REACTIONS (7)
  - Dizziness [Recovered/Resolved]
  - Injection site bruising [Recovering/Resolving]
  - Nausea [Recovered/Resolved]
  - Injection site injury [Not Recovered/Not Resolved]
  - Injection site bruising [Not Recovered/Not Resolved]
  - Injection site erythema [Recovered/Resolved]
  - Feeling abnormal [Recovered/Resolved]

NARRATIVE: CASE EVENT DATE: 2009
